FAERS Safety Report 16219527 (Version 5)
Quarter: 2020Q4

REPORT INFORMATION
  Report Type: Spontaneous
  Country: DE (occurrence: DE)
  Receive Date: 20190420
  Receipt Date: 20201104
  Transmission Date: 20210113
  Serious: Yes (Hospitalization, Other)
  Sender: FDA-Public Use
  Company Number: DE-AUROBINDO-AUR-APL-2018-038785

PATIENT
  Sex: Female
  Weight: 123 kg

DRUGS (6)
  1. KISQALI [Suspect]
     Active Substance: RIBOCICLIB
     Dosage: 600 MILLIGRAM ((21 DAYS INTAKE, 7 DAYS PAUSE)
     Route: 048
     Dates: start: 20180529, end: 20180730
  2. KISQALI [Suspect]
     Active Substance: RIBOCICLIB
     Indication: BREAST CANCER
     Dosage: 200 MG, UNK
     Route: 048
     Dates: start: 20180529, end: 20180730
  3. KISQALI [Suspect]
     Active Substance: RIBOCICLIB
     Dosage: 400 MILLIGRAM, DAILY (21 DAYS INTAKE, 7 DAYS PAUSE)
     Route: 048
     Dates: start: 20180903, end: 20190120
  4. LETROZOLE. [Suspect]
     Active Substance: LETROZOLE
     Indication: BREAST CANCER METASTATIC
  5. KISQALI [Suspect]
     Active Substance: RIBOCICLIB
     Dosage: 400 MILLIGRAM, DAILY ((21 DAYS INTAKE, 7 DAYS PAUSE)
     Route: 048
     Dates: start: 20190126
  6. LETROZOLE. [Suspect]
     Active Substance: LETROZOLE
     Indication: BREAST CANCER METASTATIC
     Dosage: 2.5 MILLIGRAM,UNK
     Route: 048
     Dates: start: 20180529

REACTIONS (9)
  - Spinal pain [Recovering/Resolving]
  - Abdominal pain [Unknown]
  - Mobility decreased [Unknown]
  - Liver function test increased [Not Recovered/Not Resolved]
  - Nausea [Unknown]
  - Pain [Recovered/Resolved]
  - Fatigue [Unknown]
  - Pelvic pain [Not Recovered/Not Resolved]
  - Oedema peripheral [Unknown]

NARRATIVE: CASE EVENT DATE: 20180702
